FAERS Safety Report 22943741 (Version 3)
Quarter: 2024Q2

REPORT INFORMATION
  Report Type: Spontaneous
  Country: US (occurrence: US)
  Receive Date: 20230914
  Receipt Date: 20240614
  Transmission Date: 20240716
  Serious: Yes (Life-Threatening, Other)
  Sender: FDA-Public Use
  Company Number: US-PFIZER INC-202300297916

PATIENT
  Age: 80 Year
  Sex: Female
  Weight: 78.02 kg

DRUGS (7)
  1. DOFETILIDE [Suspect]
     Active Substance: DOFETILIDE
     Indication: Atrial fibrillation
     Dosage: 125 MG
     Dates: start: 202112
  2. DOFETILIDE [Suspect]
     Active Substance: DOFETILIDE
     Dosage: 250 MG
     Dates: start: 202112, end: 202307
  3. DOFETILIDE [Suspect]
     Active Substance: DOFETILIDE
     Dosage: UNK
  4. LOSARTAN [Concomitant]
     Active Substance: LOSARTAN
     Indication: Hypertension
     Dosage: 25 MILLIGRAMS, TWICE A DAY
  5. DILTIAZEM HYDROCHLORIDE [Concomitant]
     Active Substance: DILTIAZEM HYDROCHLORIDE
     Indication: Hypertension
     Dosage: UNK
  6. SPIRONOLACTONE [Concomitant]
     Active Substance: SPIRONOLACTONE
     Indication: Diuretic therapy
     Dosage: I TAKE 12.5 MILLIGRAMS, TWICE A DAY
  7. TORSEMIDE [Concomitant]
     Active Substance: TORSEMIDE
     Indication: Diuretic therapy
     Dosage: I TAKE 30 MILLIGRAMS A DAY DIVIDED IN 10 MILLIGRAMS.

REACTIONS (8)
  - Cardiac arrest [Unknown]
  - Respiratory arrest [Unknown]
  - Neovascular age-related macular degeneration [Unknown]
  - Hepatic fibrosis [Unknown]
  - Drug ineffective [Unknown]
  - COVID-19 [Recovered/Resolved]
  - Abdominal pain upper [Unknown]
  - Gastrointestinal disorder [Unknown]

NARRATIVE: CASE EVENT DATE: 20230101
